FAERS Safety Report 17430163 (Version 2)
Quarter: 2020Q1

REPORT INFORMATION
  Report Type: Spontaneous
  Country: US (occurrence: US)
  Receive Date: 20200218
  Receipt Date: 20200303
  Transmission Date: 20200409
  Serious: No
  Sender: FDA-Public Use
  Company Number: US-PFIZER INC-2020070462

PATIENT
  Age: 82 Year
  Sex: Male
  Weight: 82.54 kg

DRUGS (1)
  1. CADUET [Suspect]
     Active Substance: AMLODIPINE BESYLATE\ATORVASTATIN CALCIUM
     Indication: HYPERTENSION
     Dosage: 5/10 - ONCE A DAY
     Dates: start: 2003

REACTIONS (2)
  - Hypotension [Recovered/Resolved]
  - Anxiety [Recovered/Resolved]
